FAERS Safety Report 9049756 (Version 1)
Quarter: 2013Q1

REPORT INFORMATION
  Report Type: Spontaneous
  Country: BR (occurrence: BR)
  Receive Date: 20130205
  Receipt Date: 20130205
  Transmission Date: 20140127
  Serious: Yes (Other)
  Sender: FDA-Public Use
  Company Number: BR-ASTRAZENECA-2013SE06103

PATIENT
  Age: 52 Year
  Sex: Male
  Weight: 70 kg

DRUGS (5)
  1. CRESTOR [Suspect]
     Route: 048
     Dates: start: 2004
  2. BRILINTA [Suspect]
     Indication: CHEST PAIN
     Route: 048
     Dates: start: 20130122
  3. ASA [Concomitant]
     Route: 048
     Dates: start: 2004
  4. CONCOR [Concomitant]
     Route: 048
     Dates: start: 2011
  5. PANTOPRAZOLE [Concomitant]
     Indication: ANTACID THERAPY
     Route: 048
     Dates: start: 2012

REACTIONS (2)
  - Chest pain [Recovered/Resolved]
  - Haematuria [Not Recovered/Not Resolved]
